FAERS Safety Report 19218012 (Version 1)
Quarter: 2021Q2

REPORT INFORMATION
  Report Type: Spontaneous
  Country: US (occurrence: US)
  Receive Date: 20210502
  Receipt Date: 20210502
  Transmission Date: 20210717
  Serious: Yes (Hospitalization)
  Sender: FDA-Public Use
  Company Number: None

PATIENT
  Age: 41 Year
  Sex: Male
  Weight: 115 kg

DRUGS (1)
  1. TEST500 [DIETARY SUPPLEMENT] [Suspect]
     Active Substance: DIETARY SUPPLEMENT
     Indication: PRODUCT USED FOR UNKNOWN INDICATION
     Dates: start: 20210428, end: 20210501

REACTIONS (3)
  - Treatment failure [None]
  - Sepsis [None]
  - Cellulitis [None]

NARRATIVE: CASE EVENT DATE: 20210502
